FAERS Safety Report 15624555 (Version 3)
Quarter: 2018Q4

REPORT INFORMATION
  Report Type: Report from Study
  Country: US (occurrence: US)
  Receive Date: 20181116
  Receipt Date: 20181218
  Transmission Date: 20190205
  Serious: Yes (Hospitalization)
  Sender: FDA-Public Use
  Company Number: US-ROCHE-2212099

PATIENT
  Sex: Male

DRUGS (2)
  1. OCREVUS [Suspect]
     Active Substance: OCRELIZUMAB
     Indication: PRIMARY PROGRESSIVE MULTIPLE SCLEROSIS
     Route: 065
     Dates: start: 20171213
  2. OCREVUS [Suspect]
     Active Substance: OCRELIZUMAB
     Dosage: 2ND INFUSION DATE
     Route: 065
     Dates: start: 20180613

REACTIONS (5)
  - Infection [Recovered/Resolved]
  - Sepsis [Recovered/Resolved]
  - Drug resistance [Recovered/Resolved]
  - Bacterial test positive [Recovered/Resolved]
  - Rash [Recovered/Resolved]
